FAERS Safety Report 5905969-1 (Version None)
Quarter: 2008Q4

REPORT INFORMATION
  Report Type: 
  Country: None (occurrence: None)
  Receive Date: 20081002
  Receipt Date: 20080926
  Transmission Date: 20090506
  Serious: Yes (Disabling)
  Sender: FDA-Public Use
  Company Number: GB-MERCK-0809GBR00129

PATIENT
  Sex: Female

DRUGS (6)
  1. ZOCOR [Suspect]
     Indication: DIABETES MELLITUS
     Route: 048
     Dates: start: 20040101
  2. ATORVASTATIN [Suspect]
     Indication: DIABETES MELLITUS
     Route: 048
     Dates: start: 20070101, end: 20080501
  3. AMLODIPINE BESYLATE [Concomitant]
     Indication: HYPERTENSION
     Route: 048
  4. BENDROFLUMETHIAZIDE [Concomitant]
     Indication: HYPERTENSION
     Route: 048
  5. INSULIN [Concomitant]
     Route: 065
  6. LISINOPRIL [Concomitant]
     Indication: HYPERTENSION
     Route: 048

REACTIONS (4)
  - ARTHRALGIA [None]
  - FATIGUE [None]
  - MUSCULAR WEAKNESS [None]
  - VULVOVAGINAL DRYNESS [None]
